FAERS Safety Report 23161407 (Version 2)
Quarter: 2023Q4

REPORT INFORMATION
  Report Type: Spontaneous
  Country: FR (occurrence: FR)
  Receive Date: 20231108
  Receipt Date: 20231117
  Transmission Date: 20240109
  Serious: Yes (Death, Hospitalization, Other)
  Sender: FDA-Public Use
  Company Number: FR-GILEAD-2023-0650195

PATIENT
  Age: 75 Year
  Sex: Male

DRUGS (1)
  1. TECARTUS [Suspect]
     Active Substance: BREXUCABTAGENE AUTOLEUCEL
     Indication: Mantle cell lymphoma
     Dosage: UNK
     Route: 065
     Dates: start: 202310

REACTIONS (3)
  - Mucormycosis [Fatal]
  - Cerebral ischaemia [Unknown]
  - Immune effector cell-associated neurotoxicity syndrome [Recovered/Resolved]

NARRATIVE: CASE EVENT DATE: 20231104
